FAERS Safety Report 7937314-4 (Version None)
Quarter: 2011Q4

REPORT INFORMATION
  Report Type: 
  Country: None (occurrence: None)
  Receive Date: 20111123
  Receipt Date: 20111121
  Transmission Date: 20120403
  Serious: Yes (Death)
  Sender: FDA-Public Use
  Company Number: AU-B.I. PHARMACEUTICALS,INC./RIDGEFIELD-2011-AU-02232AU

PATIENT
  Sex: Male
  Weight: 87 kg

DRUGS (8)
  1. PRADAXA [Suspect]
     Indication: ATRIAL FIBRILLATION
     Dates: start: 20110801
  2. FISH OIL [Concomitant]
  3. IRBESARTAN [Concomitant]
  4. LANOXIN [Concomitant]
  5. SEREPAX [Concomitant]
  6. FUROSEMIDE [Concomitant]
  7. CARVEDILOL [Concomitant]
  8. LEVOTHYROXINE SODIUM [Concomitant]

REACTIONS (2)
  - THROMBOCYTOPENIA [None]
  - PULMONARY HAEMORRHAGE [None]
